FAERS Safety Report 6464478-4 (Version None)
Quarter: 2009Q4

REPORT INFORMATION
  Report Type: 
  Country: None (occurrence: None)
  Receive Date: 20091124
  Receipt Date: 20091109
  Transmission Date: 20100525
  Serious: Yes (Hospitalization)
  Sender: FDA-Public Use
  Company Number: 20090546

PATIENT
  Age: 16 Month
  Sex: Male

DRUGS (3)
  1. DEXAMETHASONE SODIUM PHOSPHATE [Suspect]
     Indication: HISTIOCYTOSIS HAEMATOPHAGIC
     Dosage: INTRAVENOUS
     Route: 042
  2. ETOPOSIDE [Suspect]
  3. CYCLOSPORINE [Suspect]

REACTIONS (4)
  - FUNGAL SKIN INFECTION [None]
  - INJECTION SITE EXTRAVASATION [None]
  - SKIN GRAFT [None]
  - WOUND NECROSIS [None]
